FAERS Safety Report 6875741-7 (Version None)
Quarter: 2010Q3

REPORT INFORMATION
  Report Type: 
  Country: None (occurrence: None)
  Receive Date: 20100727
  Receipt Date: 20070521
  Transmission Date: 20110219
  Serious: Yes (Hospitalization, Other)
  Sender: FDA-Public Use
  Company Number: US-PFIZER INC-2006133688

PATIENT
  Sex: Male
  Weight: 87.1 kg

DRUGS (6)
  1. CELEBREX [Suspect]
     Indication: PAIN MANAGEMENT
     Route: 048
     Dates: start: 20020101
  2. VIOXX [Suspect]
     Route: 048
     Dates: start: 20000501, end: 20040901
  3. VIAGRA [Concomitant]
  4. CRESTOR [Concomitant]
     Dates: start: 20031116
  5. ALLEGRA [Concomitant]
  6. ALTACE [Concomitant]

REACTIONS (1)
  - ISCHAEMIC STROKE [None]
